FAERS Safety Report 5048178-3 (Version None)
Quarter: 2006Q3

REPORT INFORMATION
  Report Type: 
  Country: None (occurrence: None)
  Receive Date: 20060711
  Receipt Date: 20050301
  Transmission Date: 20061208
  Serious: Yes (Life-Threatening, Hospitalization)
  Sender: FDA-Public Use
  Company Number: BR-ROCHE-397027

PATIENT
  Age: 43 Year
  Sex: Male
  Weight: 62.2 kg

DRUGS (7)
  1. VALGANCICLOVIR HCL [Suspect]
     Dosage: DATE OF LAST DOSE PRIOR TO SAE WAS 28 FEB 2005
     Route: 048
     Dates: start: 20050215, end: 20050228
  2. MMF [Concomitant]
     Dates: start: 20011201, end: 20050815
  3. PREDNISONE [Concomitant]
     Dosage: 22 APR 1995 TO 24 FEB 2005 THE PATIENT RECEIVED 7.5 MG.
     Dates: start: 19950422
  4. CIPROFLOXACIN [Concomitant]
     Dates: start: 20050225, end: 20050303
  5. RANITIDINE [Concomitant]
     Dates: start: 20050226, end: 20050305
  6. LACTULOSE SOLUTION [Concomitant]
     Dosage: REPORTED AS LACTULONE.
     Dates: start: 20050228, end: 20050302
  7. NISTATIN [Concomitant]
     Dates: start: 20050225, end: 20050302

REACTIONS (5)
  - HEPATIC FAILURE [None]
  - HEPATITIS C [None]
  - HEPATOTOXICITY [None]
  - RENAL DISORDER [None]
  - THROMBOCYTOPENIA [None]
